FAERS Safety Report 5127069-3 (Version None)
Quarter: 2006Q4

REPORT INFORMATION
  Report Type: 
  Country: None (occurrence: None)
  Receive Date: 20061013
  Receipt Date: 20060922
  Transmission Date: 20070319
  Serious: Yes (Death, Hospitalization, Other)
  Sender: FDA-Public Use
  Company Number: PHHO2006CN15860

PATIENT
  Age: 40 Year
  Sex: Female
  Weight: 50 kg

DRUGS (5)
  1. ERL080A VS MMF [Suspect]
     Indication: RENAL TRANSPLANT
     Route: 048
     Dates: start: 20050624, end: 20051012
  2. NEORAL [Suspect]
     Indication: RENAL TRANSPLANT
     Dosage: 200 MG, BID
     Route: 048
     Dates: start: 20050623, end: 20050704
  3. NEORAL [Suspect]
     Dosage: 425 MG DAILY
     Dates: start: 20050705, end: 20050808
  4. NEORAL [Suspect]
     Dosage: 150 MG, BID
     Route: 048
     Dates: start: 20050809, end: 20050812
  5. NEORAL [Suspect]
     Dosage: 225 MG DAILY
     Route: 048
     Dates: start: 20050813

REACTIONS (10)
  - ACUTE RESPIRATORY DISTRESS SYNDROME [None]
  - CYTOMEGALOVIRUS ANTIBODY POSITIVE [None]
  - CYTOMEGALOVIRUS INFECTION [None]
  - DIABETES MELLITUS [None]
  - INTENTIONAL OVERDOSE [None]
  - LUNG INFECTION [None]
  - PYREXIA [None]
  - SUICIDE ATTEMPT [None]
  - URETERIC FISTULA [None]
  - URINARY ANASTOMOTIC LEAK [None]
